FAERS Safety Report 25743920 (Version 4)
Quarter: 2025Q4

REPORT INFORMATION
  Report Type: Report from Study
  Country: KR (occurrence: KR)
  Receive Date: 20250831
  Receipt Date: 20251121
  Transmission Date: 20260117
  Serious: Yes (Hospitalization, Other)
  Sender: ABBVIE
  Company Number: KR-ABBVIE-6434870

PATIENT
  Age: 72 Year
  Sex: Male
  Weight: 88 kg

DRUGS (38)
  1. VENCLEXTA [Suspect]
     Active Substance: VENETOCLAX
     Indication: Acute myeloid leukaemia
     Route: 048
     Dates: start: 20250319, end: 20250319
  2. VENCLEXTA [Suspect]
     Active Substance: VENETOCLAX
     Indication: Acute myeloid leukaemia
     Route: 048
     Dates: start: 20250320, end: 20250320
  3. VENCLEXTA [Suspect]
     Active Substance: VENETOCLAX
     Indication: Acute myeloid leukaemia
     Route: 048
     Dates: start: 20250318, end: 20250318
  4. VENCLEXTA [Suspect]
     Active Substance: VENETOCLAX
     Indication: Acute myeloid leukaemia
     Route: 048
     Dates: start: 20250321, end: 20250406
  5. VENCLEXTA [Suspect]
     Active Substance: VENETOCLAX
     Indication: Acute myeloid leukaemia
     Route: 048
  6. GLUCOPHAGE [Concomitant]
     Active Substance: METFORMIN HYDROCHLORIDE
     Indication: Diabetes mellitus
     Dosage: EXTENDED-RELEASE ONGOING
     Route: 048
  7. Amosartan plus [Concomitant]
     Indication: Hypertension
     Dosage: ONGOING 5 MG, 100 MG, 12.5 MG
     Route: 048
  8. POTASSIUM CHLORIDE [Concomitant]
     Active Substance: POTASSIUM CHLORIDE
     Indication: Hypokalaemia
     Dosage: CHOONGWAE
     Route: 042
     Dates: start: 20250404, end: 20250410
  9. SOMETO [Concomitant]
     Indication: Benign prostatic hyperplasia
     Dosage: TAKE AT BEDTIME ONGOING
     Route: 048
  10. JARDIANCE [Concomitant]
     Active Substance: EMPAGLIFLOZIN
     Indication: Diabetes mellitus
     Route: 048
     Dates: start: 20250403, end: 20250407
  11. LENOGRASTIM [Concomitant]
     Active Substance: LENOGRASTIM
     Indication: Neutropenia
     Dosage: INJ 250MCG; UNIT DOSE:1 VIAL
     Route: 042
     Dates: start: 20250331, end: 20250331
  12. Peniramin [Concomitant]
     Indication: Premedication
     Route: 042
     Dates: start: 20250331, end: 20250331
  13. Codaewon S [Concomitant]
     Indication: Cough
     Dosage: TIME INTERVAL: 0.33333333 DAYS: ONGOING
     Route: 048
     Dates: start: 20250313
  14. HUMALOG KWIKPEN [Concomitant]
     Active Substance: INSULIN LISPRO
     Indication: Diabetes mellitus
     Dosage: 300UNIT/3ML
     Route: 058
     Dates: start: 20250403, end: 20250407
  15. REMERON [Concomitant]
     Active Substance: MIRTAZAPINE
     Indication: Depression
     Route: 048
     Dates: start: 20250313, end: 20250407
  16. LEVODROPROPIZINE [Concomitant]
     Active Substance: LEVODROPROPIZINE
     Indication: Cough
     Dosage: TIME INTERVAL: 0.33333333 DAYS
     Route: 048
     Dates: start: 20250315, end: 20250417
  17. IVABRADINE [Concomitant]
     Active Substance: IVABRADINE
     Indication: Pulmonary hypertension
     Dosage: ONGOING
     Route: 048
     Dates: start: 20250403
  18. ALLOPURINOL [Concomitant]
     Active Substance: ALLOPURINOL
     Indication: Prophylaxis
     Dosage: TIME INTERVAL: 0.33333333 DAYS: ONGOING
     Route: 048
     Dates: start: 20250318
  19. Sinil folic acid [Concomitant]
     Indication: Nutritional supplementation
     Dosage: ONGOING
     Route: 048
     Dates: start: 20250318
  20. YUHAN  VITAMIN C [Concomitant]
     Indication: Nutritional supplementation
     Dosage: ONGOING
     Route: 048
     Dates: start: 20250318
  21. ALFUZOSIN [Concomitant]
     Active Substance: ALFUZOSIN
     Indication: Benign prostatic hyperplasia
     Dosage: EXTENDED-RELEASE, TAKE AT BEDTIME
     Route: 048
     Dates: start: 20250317, end: 20250407
  22. Debikin [Concomitant]
     Indication: Acute myeloid leukaemia
     Dates: start: 20250318, end: 20250322
  23. A xat cr [Concomitant]
     Indication: Depression
     Dosage: TAKE AT BEDTIME
     Route: 048
     Dates: start: 20250313, end: 20250407
  24. SMOFLIPID [Concomitant]
     Active Substance: FISH OIL\MEDIUM-CHAIN TRIGLYCERIDES\OLIVE OIL\SOYBEAN OIL
     Indication: Nutritional supplementation
     Dosage: 20 % EVERY OTHER DAY
     Route: 042
     Dates: start: 20250405, end: 20250409
  25. FREAMINE III NOS [Concomitant]
     Active Substance: AMINO ACIDS
     Indication: Nutritional supplementation
     Dosage: 10 %  BAG EVERY OTHER DAY
     Route: 042
     Dates: start: 20250403, end: 20250410
  26. Lopain [Concomitant]
     Indication: Diarrhoea
     Route: 048
     Dates: start: 20250324, end: 20250407
  27. MIRABEGRON [Concomitant]
     Active Substance: MIRABEGRON
     Indication: Benign prostatic hyperplasia
     Dosage: PROLONGED-RELEASE, TAKE AT BEDTIME
     Route: 048
     Dates: start: 20250317, end: 20250407
  28. TRAZODONE HYDROCHLORIDE [Concomitant]
     Active Substance: TRAZODONE HYDROCHLORIDE
     Indication: Depression
     Dosage: 25 MG TAKE AT BEDTIME
     Route: 048
     Dates: start: 20250313, end: 20250323
  29. Bc codeine phosphate [Concomitant]
     Indication: Cough
     Dosage: TIME INTERVAL: 0.33333333 DAYS: ONGOING
     Route: 048
     Dates: start: 20250319
  30. WHANIN CLONAZEPAM [Concomitant]
     Indication: Depression
     Dosage: TAKE AT BEDTIME, ONGOING
     Route: 048
     Dates: start: 20250313
  31. Sinil pyridoxine [Concomitant]
     Indication: Nervous system disorder prophylaxis
     Dosage: ONGOING
     Route: 048
     Dates: start: 20250318
  32. M-cobal [Concomitant]
     Indication: Nervous system disorder prophylaxis
     Dosage: 500 MCG
     Route: 048
     Dates: start: 20250318, end: 20250407
  33. SAMSCA [Concomitant]
     Active Substance: TOLVAPTAN
     Indication: Hyponatraemia
     Route: 048
     Dates: start: 20250319, end: 20250407
  34. LEVOFLOXACIN [Concomitant]
     Active Substance: LEVOFLOXACIN
     Indication: Infection prophylaxis
     Route: 048
     Dates: start: 20250318, end: 20250403
  35. AMARYL [Concomitant]
     Active Substance: GLIMEPIRIDE
     Indication: Diabetes mellitus
     Dosage: 4 MG
     Route: 048
     Dates: start: 20250317, end: 20250406
  36. NESINA [Concomitant]
     Active Substance: ALOGLIPTIN BENZOATE
     Indication: Diabetes mellitus
     Dosage: ONGOING
     Route: 048
  37. ZOYLEX [Concomitant]
     Indication: Infection prophylaxis
     Dosage: ONGOING
     Route: 048
     Dates: start: 20250403
  38. NOXAFIL [Concomitant]
     Active Substance: POSACONAZOLE
     Indication: Infection prophylaxis
     Dosage: GASTRO RESISTANT 100 MG
     Route: 048
     Dates: start: 20250318, end: 20250410

REACTIONS (4)
  - Dyspnoea [Not Recovered/Not Resolved]
  - Febrile neutropenia [Not Recovered/Not Resolved]
  - Acute myeloid leukaemia [Not Recovered/Not Resolved]
  - Pulmonary oedema [Not Recovered/Not Resolved]

NARRATIVE: CASE EVENT DATE: 20250319
